FAERS Safety Report 8608255-4 (Version None)
Quarter: 2012Q3

REPORT INFORMATION
  Report Type: 
  Country: None (occurrence: None)
  Receive Date: 20120809
  Receipt Date: 20120809
  Transmission Date: 20120928
  Serious: Yes (Life-Threatening, Hospitalization)
  Sender: FDA-Public Use
  Company Number: None

PATIENT
  Age: 71 Year
  Sex: Male
  Weight: 106 kg

DRUGS (1)
  1. DAPTOMYCIN [Suspect]
     Indication: OSTEOMYELITIS
     Dosage: 400 MG Q24H IVPB
     Route: 042
     Dates: start: 20120715, end: 20120803

REACTIONS (4)
  - CARDIAC FAILURE CONGESTIVE [None]
  - COUGH [None]
  - DYSPNOEA [None]
  - PNEUMONIA [None]
